FAERS Safety Report 20510308 (Version 1)
Quarter: 2022Q1

REPORT INFORMATION
  Report Type: Spontaneous
  Country: DE (occurrence: DE)
  Receive Date: 20220224
  Receipt Date: 20220224
  Transmission Date: 20220424
  Serious: Yes (Life-Threatening, Hospitalization)
  Sender: FDA-Public Use
  Company Number: DE-TEVA-2022-DE-2008676

PATIENT
  Sex: Male
  Weight: 99.5 kg

DRUGS (8)
  1. SULFAMETHOXAZOLE\TRIMETHOPRIM [Suspect]
     Active Substance: SULFAMETHOXAZOLE\TRIMETHOPRIM
     Indication: Infection
     Dates: start: 20210422, end: 20210505
  2. ENALAPRIL [Suspect]
     Active Substance: ENALAPRIL
     Dates: start: 2000
  3. ENALAPRIL\HYDROCHLOROTHIAZIDE [Suspect]
     Active Substance: ENALAPRIL\HYDROCHLOROTHIAZIDE
     Dates: start: 2000
  4. VANCOMYCIN [Suspect]
     Active Substance: VANCOMYCIN
     Route: 042
     Dates: start: 20210408, end: 20210422
  5. CEFUROXIME SODIUM [Suspect]
     Active Substance: CEFUROXIME SODIUM
     Indication: Urinary tract infection
     Route: 065
     Dates: start: 20210422, end: 20210504
  6. LANTUS [Concomitant]
     Active Substance: INSULIN GLARGINE
     Indication: Type 2 diabetes mellitus
     Route: 065
     Dates: start: 20201104, end: 20210504
  7. METFORMIN\SITAGLIPTIN [Concomitant]
     Active Substance: METFORMIN\SITAGLIPTIN
     Dates: start: 2005
  8. PALEXIA [Concomitant]
     Active Substance: TAPENTADOL HYDROCHLORIDE
     Route: 065
     Dates: start: 20210409, end: 20210428

REACTIONS (1)
  - Acute kidney injury [Recovered/Resolved]

NARRATIVE: CASE EVENT DATE: 20210505
